FAERS Safety Report 7765626-6 (Version None)
Quarter: 2011Q3

REPORT INFORMATION
  Report Type: 
  Country: None (occurrence: None)
  Receive Date: 20110921
  Receipt Date: 20110920
  Transmission Date: 20111222
  Serious: Yes (Other)
  Sender: FDA-Public Use
  Company Number: PHHY2011NL55022

PATIENT
  Sex: Female

DRUGS (10)
  1. ZOPICLONE [Concomitant]
  2. OXYCODONE HCL [Concomitant]
  3. ZOMETA [Suspect]
     Dosage: 4 MG, EVERY 28 DAYS IN 20 MINUTES
     Dates: start: 20110621
  4. ZOMETA [Suspect]
     Dosage: 4 MG, EVERY 28 DAYS IN 20 MINUTES
     Dates: start: 20110526
  5. SYMBICORT [Concomitant]
  6. OXYCONTIN [Concomitant]
  7. ZOMETA [Suspect]
     Indication: LUNG CANCER METASTATIC
     Dosage: 4 MG, EVERY 28 DAYS IN 20 MINUTES
     Dates: start: 20110303, end: 20110815
  8. MOVICOLON [Concomitant]
  9. PANTOPRAZOLE [Concomitant]
  10. ACETAMINOPHEN [Concomitant]

REACTIONS (7)
  - APPARENT DEATH [None]
  - NEOPLASM PROGRESSION [None]
  - METASTASES TO BREAST [None]
  - DRUG EFFECT DECREASED [None]
  - NEOPLASM MALIGNANT [None]
  - METASTASES TO ADRENALS [None]
  - BONE PAIN [None]
